FAERS Safety Report 5025952-0 (Version None)
Quarter: 2006Q2

REPORT INFORMATION
  Report Type: 
  Country: None (occurrence: None)
  Receive Date: 20060608
  Receipt Date: 20060519
  Transmission Date: 20061013
  Serious: Yes (Hospitalization)
  Sender: FDA-Public Use
  Company Number: JPKYO-S-20060021 - V001

PATIENT
  Age: 73 Year
  Sex: Male

DRUGS (2)
  1. NAVELBINE [Suspect]
     Indication: LUNG NEOPLASM MALIGNANT
     Dosage: INTRAVENOUS
     Route: 042
     Dates: start: 20060404, end: 20060404
  2. DECADRON SRC [Concomitant]

REACTIONS (1)
  - NON-CARDIOGENIC PULMONARY OEDEMA [None]
